FAERS Safety Report 12638581 (Version 2)
Quarter: 2016Q3

REPORT INFORMATION
  Report Type: Report from Study
  Country: US (occurrence: US)
  Receive Date: 20160809
  Receipt Date: 20160919
  Transmission Date: 20161109
  Serious: Yes (Hospitalization, Other)
  Sender: FDA-Public Use
  Company Number: US-009507513-1608USA002463

PATIENT
  Age: 80 Year
  Sex: Female
  Weight: 67.94 kg

DRUGS (16)
  1. ALPRAZOLAM. [Concomitant]
     Active Substance: ALPRAZOLAM
  2. LANTHANUM CARBONATE. [Concomitant]
     Active Substance: LANTHANUM CARBONATE
  3. VITAMINS (UNSPECIFIED) [Concomitant]
     Active Substance: VITAMINS
  4. MORPHINE SULFATE. [Concomitant]
     Active Substance: MORPHINE SULFATE
  5. GABAPENTIN. [Concomitant]
     Active Substance: GABAPENTIN
  6. METOPROLOL. [Concomitant]
     Active Substance: METOPROLOL
  7. HEPARIN [Concomitant]
     Active Substance: HEPARIN SODIUM
  8. ASPIRIN. [Concomitant]
     Active Substance: ASPIRIN
  9. SODIUM CHLORIDE. [Concomitant]
     Active Substance: SODIUM CHLORIDE
  10. ASCORBIC ACID (+) FOLIC ACID (+) VITAMIN B COMPLEX [Concomitant]
  11. VALSARTAN. [Concomitant]
     Active Substance: VALSARTAN
  12. HUMALOG [Concomitant]
     Active Substance: INSULIN LISPRO
  13. AMARYL [Suspect]
     Active Substance: GLIMEPIRIDE
  14. CLONIDINE. [Concomitant]
     Active Substance: CLONIDINE
  15. ZEPATIER [Suspect]
     Active Substance: ELBASVIR\GRAZOPREVIR
     Indication: HEPATITIS C
     Dosage: 1 DF(50MG/100MG), QD
     Route: 048
     Dates: start: 20160428, end: 20160720
  16. AMLODIPINE [Concomitant]
     Active Substance: AMLODIPINE BESYLATE

REACTIONS (3)
  - Chest pain [Unknown]
  - Gastrointestinal haemorrhage [Unknown]
  - Musculoskeletal pain [Unknown]

NARRATIVE: CASE EVENT DATE: 2016
